FAERS Safety Report 4856056-5 (Version None)
Quarter: 2005Q4

REPORT INFORMATION
  Report Type: 
  Country: None (occurrence: None)
  Receive Date: 20051216
  Receipt Date: 20050713
  Transmission Date: 20060501
  Serious: Yes (Hospitalization, Other)
  Sender: FDA-Public Use
  Company Number: FR-ABBOTT-05P-056-0305926-00

PATIENT
  Age: 38 Year
  Sex: Female
  Weight: 50 kg

DRUGS (10)
  1. KALETRA [Suspect]
     Indication: DRUG USE FOR UNKNOWN INDICATION
     Dates: start: 20050121, end: 20050512
  2. CLOXACILLIN [Suspect]
     Indication: DRUG USE FOR UNKNOWN INDICATION
     Route: 042
     Dates: start: 20050113, end: 20050223
  3. GENTAMICIN [Suspect]
     Indication: DRUG USE FOR UNKNOWN INDICATION
     Route: 042
     Dates: start: 20050113, end: 20050127
  4. TENOFOVIR [Suspect]
     Indication: HIV INFECTION
     Route: 048
     Dates: start: 20050121, end: 20050130
  5. ENFUVIRTIDE [Suspect]
     Indication: DRUG USE FOR UNKNOWN INDICATION
     Route: 058
     Dates: start: 20050121
  6. NEVIRAPINE [Concomitant]
     Indication: HIV INFECTION
     Dates: start: 20010901
  7. ZALCITABINE [Concomitant]
     Indication: HIV INFECTION
     Dates: start: 20010901
  8. LAMIVUDINE [Concomitant]
     Indication: HIV INFECTION
     Dates: start: 20010901
  9. NELFINAVIR [Concomitant]
     Indication: HIV INFECTION
     Dates: start: 20010901
  10. RITONAVIR [Concomitant]
     Indication: HIV INFECTION
     Route: 048
     Dates: start: 20050515, end: 20050720

REACTIONS (8)
  - AORTIC VALVE INCOMPETENCE [None]
  - CARDIOMEGALY [None]
  - DYSPNOEA EXERTIONAL [None]
  - EJECTION FRACTION ABNORMAL [None]
  - ENDOCARDITIS [None]
  - HYPERCREATININAEMIA [None]
  - RENAL FAILURE [None]
  - VENTRICULAR DYSFUNCTION [None]
